FAERS Safety Report 26070881 (Version 2)
Quarter: 2025Q4

REPORT INFORMATION
  Report Type: Spontaneous
  Country: US (occurrence: US)
  Receive Date: 20251120
  Receipt Date: 20251221
  Transmission Date: 20260118
  Serious: No
  Sender: SANOFI AVENTIS
  Company Number: US-SA-2025SA346241

PATIENT
  Age: 70 Year
  Sex: Female

DRUGS (3)
  1. DUPIXENT [Suspect]
     Active Substance: DUPILUMAB
     Indication: Urticaria
     Dosage: 600 MG, 1X
     Route: 058
     Dates: start: 202508, end: 202508
  2. DUPIXENT [Suspect]
     Active Substance: DUPILUMAB
     Indication: Idiopathic urticaria
     Dosage: 300 MG, QM
     Route: 058
     Dates: start: 2025, end: 2025
  3. DUPIXENT [Suspect]
     Active Substance: DUPILUMAB
     Dosage: 300 MG, QOW
     Route: 058
     Dates: start: 2025, end: 2025

REACTIONS (12)
  - Dermatitis [Unknown]
  - Skin warm [Unknown]
  - Feeling hot [Unknown]
  - Blister [Unknown]
  - Urticaria [Unknown]
  - Erythema [Recovering/Resolving]
  - Condition aggravated [Recovering/Resolving]
  - Rash [Unknown]
  - Pruritus [Recovering/Resolving]
  - Therapeutic response shortened [Recovering/Resolving]
  - Inappropriate schedule of product administration [Unknown]
  - Product use in unapproved indication [Unknown]

NARRATIVE: CASE EVENT DATE: 20250101
